FAERS Safety Report 9951822 (Version 1)
Quarter: 2014Q1

REPORT INFORMATION
  Report Type: Report from Study
  Country: CA (occurrence: CA)
  Receive Date: 20140304
  Receipt Date: 20140304
  Transmission Date: 20141002
  Serious: Yes (Life-Threatening, Hospitalization, Other)
  Sender: FDA-Public Use
  Company Number: PHHY2014CA025743

PATIENT
  Age: 36 Year
  Sex: Male

DRUGS (2)
  1. CLOZARIL [Suspect]
     Indication: ABNORMAL BEHAVIOUR
     Dosage: 300 MG, QHS
     Route: 048
     Dates: start: 2007
  2. PROPANOLOL [Concomitant]
     Dosage: 10 MG, TID

REACTIONS (2)
  - Pulmonary embolism [Recovered/Resolved]
  - General physical health deterioration [Unknown]
